FAERS Safety Report 13899002 (Version 1)
Quarter: 2017Q3

REPORT INFORMATION
  Report Type: Spontaneous
  Country: US (occurrence: US)
  Receive Date: 20170823
  Receipt Date: 20170823
  Transmission Date: 20171127
  Serious: Yes (Other)
  Sender: FDA-Public Use
  Company Number: None

PATIENT
  Age: 53 Year
  Sex: Female
  Weight: 73.35 kg

DRUGS (1)
  1. TESTOSTERONE. [Suspect]
     Active Substance: TESTOSTERONE
     Indication: SUPPORTIVE CARE
     Dosage: ?          OTHER FREQUENCY:WEEKLY;?
     Route: 030

REACTIONS (2)
  - Product contamination [None]
  - Bacteraemia [None]

NARRATIVE: CASE EVENT DATE: 20170721
